FAERS Safety Report 5678412-8 (Version None)
Quarter: 2008Q1

REPORT INFORMATION
  Report Type: 
  Country: None (occurrence: None)
  Receive Date: 20080321
  Receipt Date: 20080313
  Transmission Date: 20080703
  Serious: Yes (Death)
  Sender: FDA-Public Use
  Company Number: E2090-00407-SPO-US

PATIENT
  Sex: Male
  Weight: 3.09 kg

DRUGS (3)
  1. ZONEGRAN [Suspect]
     Indication: DRUG EXPOSURE DURING PREGNANCY
     Dosage: 400 MG, 2 IN 1 D, TRANSPLACENTAL
     Route: 064
     Dates: start: 20070101, end: 20071130
  2. FOLIC ACID [Concomitant]
  3. DEPAKOTE ER [Concomitant]

REACTIONS (6)
  - ANAEMIA NEONATAL [None]
  - DRUG EXPOSURE DURING PREGNANCY [None]
  - INBORN ERROR OF METABOLISM [None]
  - METABOLIC ACIDOSIS [None]
  - NEONATAL DISORDER [None]
  - SKIN DISCOLOURATION [None]
